FAERS Safety Report 4473597-3 (Version None)
Quarter: 2004Q4

REPORT INFORMATION
  Report Type: 
  Country: None (occurrence: None)
  Receive Date: 20041013
  Receipt Date: 20030605
  Transmission Date: 20050328
  Serious: Yes (Other)
  Sender: FDA-Public Use
  Company Number: US-MERCK-0306USA00745

PATIENT
  Age: 72 Year
  Sex: Male

DRUGS (1)
  1. VIOXX [Suspect]
     Route: 048

REACTIONS (18)
  - ADVERSE EVENT [None]
  - ANGINA PECTORIS [None]
  - APPENDIX DISORDER [None]
  - ARTHROPATHY [None]
  - CARDIAC DISORDER [None]
  - CHEST PAIN [None]
  - CONVULSION [None]
  - CORONARY ARTERY DISEASE [None]
  - DIABETES MELLITUS [None]
  - GASTRIC ULCER [None]
  - GASTROINTESTINAL HAEMORRHAGE [None]
  - GOUT [None]
  - HAEMORRHAGE [None]
  - HYPERTENSION [None]
  - MELAENA [None]
  - MONARTHRITIS [None]
  - MYOCARDIAL INFARCTION [None]
  - TONSILLAR DISORDER [None]
